FAERS Safety Report 5814738-2 (Version None)
Quarter: 2008Q3

REPORT INFORMATION
  Report Type: 
  Country: None (occurrence: None)
  Receive Date: 20080718
  Receipt Date: 20080708
  Transmission Date: 20090109
  Serious: Yes (Disabling, Other)
  Sender: FDA-Public Use
  Company Number: JP-JNJFOC-20080505151

PATIENT
  Sex: Female
  Weight: 53 kg

DRUGS (26)
  1. REMICADE [Suspect]
     Dosage: 12 INFUSIONS ON UNKNOWN DATES
     Route: 042
  2. REMICADE [Suspect]
     Route: 042
  3. REMICADE [Suspect]
     Route: 042
  4. REMICADE [Suspect]
     Route: 042
  5. REMICADE [Suspect]
     Route: 042
  6. REMICADE [Suspect]
     Route: 042
  7. REMICADE [Suspect]
     Indication: RHEUMATOID ARTHRITIS
     Route: 042
  8. METHOTREXATE [Suspect]
     Indication: RHEUMATOID ARTHRITIS
     Route: 048
  9. RHEUMATREX [Suspect]
     Route: 048
  10. RHEUMATREX [Suspect]
     Route: 048
  11. RHEUMATREX [Suspect]
     Route: 048
  12. RHEUMATREX [Suspect]
     Route: 048
  13. RHEUMATREX [Suspect]
     Indication: RHEUMATOID ARTHRITIS
     Route: 048
  14. BETAMETHASONE [Concomitant]
     Indication: RHEUMATOID ARTHRITIS
     Route: 048
  15. AZULFIDIN [Concomitant]
     Indication: RHEUMATOID ARTHRITIS
     Route: 048
  16. VOLTAREN [Concomitant]
     Indication: RHEUMATOID ARTHRITIS
     Route: 054
  17. VOLTAREN [Concomitant]
  18. FOLIAMIN [Concomitant]
     Indication: PROPHYLAXIS
     Route: 048
  19. CINAL [Concomitant]
     Route: 048
  20. CYTOTEC [Concomitant]
     Route: 048
  21. TERNELIN [Concomitant]
     Route: 048
  22. TAKEPRON [Concomitant]
     Route: 048
  23. TRYPTANOL [Concomitant]
     Route: 048
  24. DEPAS [Concomitant]
     Route: 048
  25. ACINON [Concomitant]
     Route: 048
  26. PREDONINE [Concomitant]
     Indication: RHEUMATOID ARTHRITIS
     Route: 048

REACTIONS (1)
  - LYMPHOMA [None]
